FAERS Safety Report 14570222 (Version 2)
Quarter: 2018Q2

REPORT INFORMATION
  Report Type: Report from Study
  Country: CA (occurrence: CA)
  Receive Date: 20180226
  Receipt Date: 20180417
  Transmission Date: 20180711
  Serious: Yes (Other)
  Sender: FDA-Public Use
  Company Number: CA-ROCHE-1848375

PATIENT
  Age: 50 Year
  Sex: Female
  Weight: 86 kg

DRUGS (11)
  1. RITUXAN [Suspect]
     Active Substance: RITUXIMAB
     Dosage: INFUSION 7
     Route: 042
     Dates: start: 20171018
  2. RITUXAN [Suspect]
     Active Substance: RITUXIMAB
     Indication: VASCULITIS
     Route: 042
     Dates: start: 20161027
  3. SEPTRA [Concomitant]
     Active Substance: SULFAMETHOXAZOLE\TRIMETHOPRIM
  4. PREDNISONE. [Suspect]
     Active Substance: PREDNISONE
     Indication: PRODUCT USED FOR UNKNOWN INDICATION
     Route: 065
  5. MIRTAZAPINE. [Suspect]
     Active Substance: MIRTAZAPINE
     Indication: DEPRESSION
     Route: 065
  6. DIPHENHYDRAMINE HCL [Concomitant]
     Active Substance: DIPHENHYDRAMINE HYDROCHLORIDE
     Indication: PREMEDICATION
     Route: 042
     Dates: start: 20161027
  7. ALENDRONATE [Concomitant]
     Active Substance: ALENDRONATE SODIUM
  8. RITUXAN [Suspect]
     Active Substance: RITUXIMAB
     Indication: GRANULOMATOSIS WITH POLYANGIITIS
     Route: 042
     Dates: start: 20170330
  9. METHYLPREDNISOLONE. [Concomitant]
     Active Substance: METHYLPREDNISOLONE
     Indication: PREMEDICATION
     Route: 042
     Dates: start: 20161027
  10. ACETAMINOPHEN. [Concomitant]
     Active Substance: ACETAMINOPHEN
     Indication: PREMEDICATION
     Route: 048
     Dates: start: 20161027
  11. LAMIVUDINE. [Concomitant]
     Active Substance: LAMIVUDINE

REACTIONS (25)
  - Infusion related reaction [Recovered/Resolved]
  - Drug effect incomplete [Unknown]
  - Throat irritation [Unknown]
  - Bronchitis [Unknown]
  - Fibula fracture [Unknown]
  - Anxiety [Unknown]
  - Heart rate increased [Unknown]
  - Hyperhidrosis [Recovered/Resolved]
  - Feeling hot [Unknown]
  - Blood pressure increased [Unknown]
  - Erythema [Recovered/Resolved]
  - Hypopnoea [Not Recovered/Not Resolved]
  - Erythema [Recovered/Resolved]
  - Feeling hot [Recovered/Resolved]
  - Rash [Recovered/Resolved]
  - Infusion related reaction [Unknown]
  - Sinusitis [Recovered/Resolved]
  - Ear infection [Unknown]
  - Weight increased [Unknown]
  - Depression [Not Recovered/Not Resolved]
  - Nose deformity [Not Recovered/Not Resolved]
  - Nervousness [Unknown]
  - Eye infection [Not Recovered/Not Resolved]
  - Infusion related reaction [Recovered/Resolved]
  - Hordeolum [Unknown]

NARRATIVE: CASE EVENT DATE: 20161027
